FAERS Safety Report 4466568-4 (Version None)
Quarter: 2004Q3

REPORT INFORMATION
  Report Type: 
  Country: None (occurrence: None)
  Receive Date: 20040917
  Receipt Date: 20040805
  Transmission Date: 20050211
  Serious: No
  Sender: FDA-Public Use
  Company Number: US-JNJFOC-20040802276

PATIENT
  Age: 29 Year
  Sex: Female
  Weight: 61.2356 kg

DRUGS (3)
  1. ORTHO EVRA [Suspect]
     Indication: MENSTRUAL DISORDER
     Dosage: 1 DOSE(S), 3 IN 4 WEEK, TRANSDERMAL
     Route: 062
     Dates: start: 20040718
  2. MV (MV) [Concomitant]
  3. ANTIFUNGAL CREAM (ANTIFUNGS FOR TOPICAL USE) [Concomitant]

REACTIONS (1)
  - METRORRHAGIA [None]
